FAERS Safety Report 20255354 (Version 1)
Quarter: 2021Q4

REPORT INFORMATION
  Report Type: Other
  Country: CN (occurrence: None)
  Receive Date: 20211230
  Receipt Date: 20211230
  Transmission Date: 20220303
  Serious: Yes (Death, Other)
  Sender: FDA-Public Use
  Company Number: CN-ROCHE-2992002

PATIENT

DRUGS (4)
  1. CAPECITABINE [Suspect]
     Active Substance: CAPECITABINE
     Indication: Colorectal cancer metastatic
     Dosage: ON DAYS 1 THROUGH 14 (28 DOSES) OF A 21-DAY CYCLE
     Route: 048
  2. CAMRELIZUMAB [Suspect]
     Active Substance: CAMRELIZUMAB
     Indication: Colorectal cancer metastatic
     Dosage: ON DAY 1
     Route: 042
  3. REGORAFENIB [Suspect]
     Active Substance: REGORAFENIB
     Indication: Colorectal cancer metastatic
     Dosage: ON DAY 1 THROUGH 21 IN A 28-DAY CYCLE.
     Route: 048
  4. OXALIPLATIN [Suspect]
     Active Substance: OXALIPLATIN
     Indication: Colorectal cancer metastatic
     Dosage: ON DAY 1
     Route: 065

REACTIONS (2)
  - Gastrointestinal perforation [Fatal]
  - Febrile neutropenia [Unknown]
